FAERS Safety Report 19170235 (Version 2)
Quarter: 2022Q1

REPORT INFORMATION
  Report Type: Spontaneous
  Country: US (occurrence: US)
  Receive Date: 20210422
  Receipt Date: 20220331
  Transmission Date: 20220423
  Serious: No
  Sender: FDA-Public Use
  Company Number: US-PFIZER INC-2021349023

PATIENT
  Age: 69 Year
  Sex: Female

DRUGS (1)
  1. IBRANCE [Suspect]
     Active Substance: PALBOCICLIB
     Indication: Breast cancer female
     Dosage: 100 MG, DAILY FOR 21 DAYS EVERY 28 DAYS
     Route: 048
     Dates: start: 20210129

REACTIONS (2)
  - Nail disorder [Not Recovered/Not Resolved]
  - White blood cell count decreased [Unknown]
